FAERS Safety Report 8459353-X (Version None)
Quarter: 2012Q2

REPORT INFORMATION
  Report Type: 
  Country: None (occurrence: None)
  Receive Date: 20120622
  Receipt Date: 20120416
  Transmission Date: 20120825
  Serious: No
  Sender: FDA-Public Use
  Company Number: US-ASTRAZENECA-2012SE25058

PATIENT
  Age: 80 Year
  Sex: Female

DRUGS (1)
  1. BRILINTA [Suspect]
     Route: 048

REACTIONS (5)
  - HEART RATE INCREASED [None]
  - MALAISE [None]
  - FEELING COLD [None]
  - HOT FLUSH [None]
  - FEELING ABNORMAL [None]
